FAERS Safety Report 9120911 (Version 1)
Quarter: 2013Q1

REPORT INFORMATION
  Report Type: Spontaneous
  Country: US (occurrence: US)
  Receive Date: 20130226
  Receipt Date: 20130226
  Transmission Date: 20140127
  Serious: No
  Sender: FDA-Public Use
  Company Number: US-009507513-1302USA012402

PATIENT
  Sex: Male

DRUGS (2)
  1. DR. SCHOLL^S FUNGAL NAIL REVITALIZER SYSTEM [Suspect]
     Indication: ONYCHOMYCOSIS
     Dosage: UNK UNK, QD
     Route: 061
  2. DR. SCHOLL^S FUNGAL NAIL REVITALIZER SYSTEM [Suspect]
     Indication: MEDICAL OBSERVATION

REACTIONS (1)
  - Drug ineffective [Unknown]
